FAERS Safety Report 12465567 (Version 1)
Quarter: 2016Q2

REPORT INFORMATION
  Report Type: Spontaneous
  Country: US (occurrence: US)
  Receive Date: 20160614
  Receipt Date: 20160614
  Transmission Date: 20160815
  Serious: Yes (Other)
  Sender: FDA-Public Use
  Company Number: US-TEVA-666167USA

PATIENT
  Sex: Female

DRUGS (3)
  1. FLUOROURACIL. [Suspect]
     Active Substance: FLUOROURACIL
     Route: 065
  2. OXALIPLATIN INJECTION 50MG/10 ML AND 100MG/20ML [Suspect]
     Active Substance: OXALIPLATIN
     Route: 065
  3. IRINOTECAN [Suspect]
     Active Substance: IRINOTECAN
     Route: 065

REACTIONS (1)
  - Disease progression [Unknown]
